FAERS Safety Report 4341185-5 (Version None)
Quarter: 2004Q2

REPORT INFORMATION
  Report Type: 
  Country: None (occurrence: None)
  Receive Date: 20040419
  Receipt Date: 20040414
  Transmission Date: 20050107
  Serious: Yes (Death, Hospitalization)
  Sender: FDA-Public Use
  Company Number: PHBS2004BR05042

PATIENT
  Age: 45 Year
  Sex: Female

DRUGS (1)
  1. DICLOFENAC SODIUM [Suspect]
     Indication: NASOPHARYNGITIS
     Dosage: 1 DF, ONCE/SINGLE
     Route: 030
     Dates: start: 20001201

REACTIONS (15)
  - BONE CANCER METASTATIC [None]
  - INJECTION SITE INDURATION [None]
  - INJECTION SITE INFLAMMATION [None]
  - INJECTION SITE MASS [None]
  - INJECTION SITE NECROSIS [None]
  - INJECTION SITE NODULE [None]
  - INJECTION SITE ULCER [None]
  - MALIGNANT FIBROUS HISTIOCYTOMA [None]
  - METASTASES TO BONE [None]
  - METASTASES TO CHEST WALL [None]
  - METASTASES TO LIVER [None]
  - METASTASES TO NERVOUS SYSTEM [None]
  - MULTI-ORGAN FAILURE [None]
  - NEOPLASM RECURRENCE [None]
  - WOUND DEHISCENCE [None]
